FAERS Safety Report 13798275 (Version 1)
Quarter: 2017Q3

REPORT INFORMATION
  Report Type: Spontaneous
  Country: US (occurrence: US)
  Receive Date: 20170727
  Receipt Date: 20170727
  Transmission Date: 20171127
  Serious: Yes (Other)
  Sender: FDA-Public Use
  Company Number: US-TEVA-791648USA

PATIENT
  Sex: Male

DRUGS (1)
  1. QVAR [Suspect]
     Active Substance: BECLOMETHASONE DIPROPIONATE
     Indication: PNEUMONITIS
     Route: 065

REACTIONS (2)
  - Product use in unapproved indication [Unknown]
  - Haemoptysis [Unknown]

NARRATIVE: CASE EVENT DATE: 20170721
